FAERS Safety Report 10676992 (Version 1)
Quarter: 2014Q4

REPORT INFORMATION
  Report Type: Spontaneous
  Country: SE (occurrence: SE)
  Receive Date: 20141226
  Receipt Date: 20141226
  Transmission Date: 20150529
  Serious: Yes (Life-Threatening, Hospitalization)
  Sender: FDA-Public Use
  Company Number: SE-PFIZER INC-2014353730

PATIENT
  Age: 26 Year
  Sex: Male

DRUGS (9)
  1. STESOLID [Concomitant]
     Active Substance: DIAZEPAM
     Dosage: UNK, AS NEEDED
  2. LYRICA [Suspect]
     Active Substance: PREGABALIN
     Dosage: 2.1- 3.8  G
     Route: 048
     Dates: start: 20131113, end: 20131113
  3. STRATTERA [Concomitant]
     Active Substance: ATOMOXETINE HYDROCHLORIDE
  4. CONCERTA [Concomitant]
     Active Substance: METHYLPHENIDATE HYDROCHLORIDE
  5. SERTRALINE [Concomitant]
     Active Substance: SERTRALINE HYDROCHLORIDE
  6. THERALEN [Concomitant]
     Active Substance: TRIMEPRAZINE
  7. ALIMEMAZINE [Concomitant]
     Active Substance: TRIMEPRAZINE
  8. SOBRIL [Suspect]
     Active Substance: OXAZEPAM
     Dosage: 60 G
     Route: 048
     Dates: start: 20131113, end: 20131113
  9. PANOCOD [Suspect]
     Active Substance: ACETAMINOPHEN\CODEINE PHOSPHATE
     Dosage: 15-20 G
     Route: 048
     Dates: start: 20131113, end: 20131113

REACTIONS (5)
  - Body temperature increased [Recovered/Resolved]
  - Respiratory disorder [Unknown]
  - Toxicity to various agents [Recovered/Resolved]
  - Suicide attempt [Recovered/Resolved]
  - Tachycardia [Recovered/Resolved]

NARRATIVE: CASE EVENT DATE: 20131113
